FAERS Safety Report 18758573 (Version 2)
Quarter: 2021Q4

REPORT INFORMATION
  Report Type: Report from Study
  Country: US (occurrence: US)
  Receive Date: 20210120
  Receipt Date: 20211102
  Transmission Date: 20220304
  Serious: Yes (Other)
  Sender: FDA-Public Use
  Company Number: US-ABBVIE-21K-163-3737371-00

PATIENT
  Age: 83 Year
  Sex: Male

DRUGS (2)
  1. IMBRUVICA [Suspect]
     Active Substance: IBRUTINIB
     Indication: Chronic lymphocytic leukaemia
     Route: 048
     Dates: start: 20170615, end: 202001
  2. IMBRUVICA [Suspect]
     Active Substance: IBRUTINIB
     Route: 048

REACTIONS (5)
  - Cataract [Unknown]
  - Lower limb fracture [Unknown]
  - Fall [Unknown]
  - Blood creatine increased [Unknown]
  - Synovial cyst [Unknown]

NARRATIVE: CASE EVENT DATE: 20210701
